FAERS Safety Report 7206243-6 (Version None)
Quarter: 2011Q1

REPORT INFORMATION
  Report Type: 
  Country: None (occurrence: None)
  Receive Date: 20110103
  Receipt Date: 20101223
  Transmission Date: 20110831
  Serious: Yes (Other)
  Sender: FDA-Public Use
  Company Number: US-AMGEN-USASP2010009507

PATIENT

DRUGS (1)
  1. ENBREL [Suspect]
     Indication: PSORIASIS
     Dosage: 50 MG, 2 TIMES/WK
     Route: 058
     Dates: start: 20101125, end: 20101205

REACTIONS (13)
  - MALAISE [None]
  - MIGRAINE [None]
  - BACK PAIN [None]
  - CHILLS [None]
  - ADVERSE DRUG REACTION [None]
  - OROPHARYNGEAL PAIN [None]
  - OCULAR ICTERUS [None]
  - ABDOMINAL PAIN UPPER [None]
  - LIVER INJURY [None]
  - INFLUENZA LIKE ILLNESS [None]
  - FATIGUE [None]
  - PAIN [None]
  - PYREXIA [None]
